FAERS Safety Report 6044103-7 (Version None)
Quarter: 2009Q1

REPORT INFORMATION
  Report Type: 
  Country: None (occurrence: None)
  Receive Date: 20090115
  Receipt Date: 20090115
  Transmission Date: 20090719
  Serious: Yes (Other)
  Sender: FDA-Public Use
  Company Number: None

PATIENT
  Age: 76 Year
  Sex: Female
  Weight: 114 kg

DRUGS (18)
  1. ENOXAPARIN SODIUM [Suspect]
     Indication: DEEP VEIN THROMBOSIS
     Dosage: 60 MG BID SQ
     Route: 058
     Dates: start: 20081204, end: 20081208
  2. ENOXAPARIN SODIUM [Suspect]
     Indication: DEEP VEIN THROMBOSIS
     Dosage: 30 MG BID SQ
     Route: 058
     Dates: start: 20081210, end: 20081215
  3. PSYLLIUM [Concomitant]
  4. PRAMIPEXOLE DIHYDROCHLORIDE [Concomitant]
  5. METOPROLOL TARTRATE [Suspect]
  6. LEVOFLOXACIN [Concomitant]
  7. SLIDING SCALE INSULIN WITH ASPART INSULIN [Suspect]
  8. HEPARIN [Concomitant]
  9. GABAPENTIN [Concomitant]
  10. FERROUS SULFATE TAB [Concomitant]
  11. ASPIRIN [Concomitant]
  12. BUMETANIDE [Concomitant]
  13. SENNA [Concomitant]
  14. ESOMEPRAZOLE MAGNESIUM [Suspect]
  15. FENTANYL-75 [Concomitant]
  16. MULTI-VITAMIN [Concomitant]
  17. OMEGA 3 FATTY ACID [Suspect]
  18. TOLTERODINE TARTRATE [Suspect]

REACTIONS (6)
  - ANTIBODY TEST POSITIVE [None]
  - DEEP VEIN THROMBOSIS [None]
  - ILEUS [None]
  - PLATELET COUNT DECREASED [None]
  - POST PROCEDURAL COMPLICATION [None]
  - THROMBOPHLEBITIS [None]
